FAERS Safety Report 5269746-X (Version None)
Quarter: 2007Q1

REPORT INFORMATION
  Report Type: 
  Country: None (occurrence: None)
  Receive Date: 20070320
  Receipt Date: 20070315
  Transmission Date: 20070707
  Serious: Yes (Hospitalization)
  Sender: FDA-Public Use
  Company Number: 2007UW04912

PATIENT
  Age: 65 Year
  Sex: Male

DRUGS (7)
  1. METOPROLOL SUCCINATE [Suspect]
     Route: 048
  2. HYDROCHLOROTHIAZIDE [Suspect]
  3. NORVASC [Suspect]
  4. HYDRALAZINE HCL [Suspect]
  5. AGGRENORX CODE NOT BROKEN [Concomitant]
  6. CLOPIDOGREL CODE NOT BROKEN [Concomitant]
  7. MICARDIS CODE NOT BROKEN [Concomitant]

REACTIONS (2)
  - ANAEMIA [None]
  - RENAL IMPAIRMENT [None]
